FAERS Safety Report 5006632-4 (Version None)
Quarter: 2006Q2

REPORT INFORMATION
  Report Type: 
  Country: None (occurrence: None)
  Receive Date: 20060516
  Receipt Date: 20060511
  Transmission Date: 20061013
  Serious: Yes (Other)
  Sender: FDA-Public Use
  Company Number: RB-3210-2006

PATIENT
  Age: 4 Year
  Sex: Male

DRUGS (4)
  1. BUPRENORPHINE HCL [Suspect]
     Indication: PAIN MANAGEMENT
     Dosage: IV
     Route: 042
  2. DIMETINDENE [Concomitant]
  3. METAMIZOLE [Concomitant]
  4. ACETAMINOPHEN [Concomitant]

REACTIONS (16)
  - ABDOMINAL PAIN [None]
  - ANAEMIA [None]
  - BLOOD CULTURE POSITIVE [None]
  - BLOOD PRESSURE DECREASED [None]
  - DIARRHOEA [None]
  - HEART RATE INCREASED [None]
  - LABORATORY TEST INTERFERENCE [None]
  - LEUKOPENIA [None]
  - LOSS OF CONSCIOUSNESS [None]
  - MICROCOCCUS INFECTION [None]
  - ORAL PAIN [None]
  - PLATELET COUNT DECREASED [None]
  - PRURITUS [None]
  - RESPIRATORY ACIDOSIS [None]
  - RESPIRATORY DEPRESSION [None]
  - UNRESPONSIVE TO VERBAL STIMULI [None]
